FAERS Safety Report 16332712 (Version 1)
Quarter: 2019Q2

REPORT INFORMATION
  Report Type: Spontaneous
  Country: US (occurrence: US)
  Receive Date: 20190520
  Receipt Date: 20190520
  Transmission Date: 20190711
  Serious: No
  Sender: FDA-Public Use
  Company Number: US-TARO-2018TAR00473

PATIENT
  Age: 69 Year
  Sex: Female
  Weight: 65.76 kg

DRUGS (22)
  1. SYNTHROID [Concomitant]
     Active Substance: LEVOTHYROXINE SODIUM
  2. VITAMIN D [Concomitant]
     Active Substance: VITAMIN D NOS
  3. ACIDOPHILUS [Concomitant]
     Active Substance: LACTOBACILLUS ACIDOPHILUS
  4. CARBAMAZEPINE EXTENDED RELEASE TABLETS USP 100MG [Suspect]
     Active Substance: CARBAMAZEPINE
     Dosage: 100 MG, 2X/DAY
     Route: 048
     Dates: start: 20180610, end: 20180616
  5. CARBAMAZEPINE EXTENDED RELEASE TABLETS USP 100MG [Suspect]
     Active Substance: CARBAMAZEPINE
     Dosage: 100 MG IN THE MORNING, 200 MG AT NIGHT
     Route: 048
     Dates: start: 20180617, end: 20180619
  6. WELLBUTRIN XL [Suspect]
     Active Substance: BUPROPION HYDROCHLORIDE
     Dosage: UNK
  7. ROBAXIN [Concomitant]
     Active Substance: METHOCARBAMOL
     Dosage: 500 MG, UNK
  8. EVOA [Concomitant]
  9. LIPOFLAVONOID [Concomitant]
     Active Substance: UNSPECIFIED INGREDIENT
  10. CARBAMAZEPINE EXTENDED RELEASE TABLETS USP 100MG [Suspect]
     Active Substance: CARBAMAZEPINE
     Indication: NEURALGIA
     Dosage: 100 MG, 1X/DAY
     Route: 048
     Dates: start: 20180603, end: 20180609
  11. CARBAMAZEPINE EXTENDED RELEASE TABLETS USP 100MG [Suspect]
     Active Substance: CARBAMAZEPINE
     Dosage: 100 MG, 1X/DAY
     Dates: start: 20180621, end: 20180623
  12. ZYRTEC [Concomitant]
     Active Substance: CETIRIZINE HYDROCHLORIDE
     Dosage: UNK
  13. AMBIEN [Concomitant]
     Active Substance: ZOLPIDEM TARTRATE
     Dosage: 10 MG, UNK
  14. NEXIUM [Concomitant]
     Active Substance: ESOMEPRAZOLE MAGNESIUM
     Dosage: 40 MG, UNK
  15. AMOXICILLIN. [Concomitant]
     Active Substance: AMOXICILLIN
  16. FEMHRT [Concomitant]
     Active Substance: ETHINYL ESTRADIOL\NORETHINDRONE ACETATE
  17. BIOTIN [Concomitant]
     Active Substance: BIOTIN
  18. SINGULAIR [Concomitant]
     Active Substance: MONTELUKAST SODIUM
     Dosage: 10 UNK, UNK
  19. CARBAMAZEPINE EXTENDED RELEASE TABLETS USP 100MG [Suspect]
     Active Substance: CARBAMAZEPINE
     Dosage: 100 MG, 2X/DAY
     Dates: start: 20180620, end: 20180621
  20. CALCIUM [Concomitant]
     Active Substance: CALCIUM
  21. D-MANNOSE [Concomitant]
  22. VITAMIN C [Concomitant]
     Active Substance: ASCORBIC ACID

REACTIONS (6)
  - Headache [Recovered/Resolved]
  - Drug interaction [Recovered/Resolved]
  - Feeling abnormal [Recovered/Resolved]
  - Prescribed underdose [Recovered/Resolved]
  - Malaise [Recovered/Resolved]
  - Rash [Recovering/Resolving]

NARRATIVE: CASE EVENT DATE: 201806
